FAERS Safety Report 5909547-X (Version None)
Quarter: 2008Q4

REPORT INFORMATION
  Report Type: 
  Country: None (occurrence: None)
  Receive Date: 20081006
  Receipt Date: 20081001
  Transmission Date: 20090506
  Serious: Yes (Other)
  Sender: FDA-Public Use
  Company Number: CA-GILEAD-2008-0018354

PATIENT
  Age: 42 Year
  Sex: Male

DRUGS (5)
  1. TRUVADA [Suspect]
  2. RITONAVIR [Concomitant]
  3. ATAZANAVIR SULFATE [Concomitant]
  4. ATIVAN [Concomitant]
  5. VALIUM [Concomitant]

REACTIONS (3)
  - CONDITION AGGRAVATED [None]
  - DEPRESSION [None]
  - THERAPEUTIC RESPONSE DECREASED [None]
